FAERS Safety Report 5166033-5 (Version None)
Quarter: 2006Q4

REPORT INFORMATION
  Report Type: 
  Country: None (occurrence: None)
  Receive Date: 20061128
  Receipt Date: 20061113
  Transmission Date: 20070319
  Serious: Yes (Death, Other)
  Sender: FDA-Public Use
  Company Number: 2006US-03770

PATIENT
  Age: 2 Year
  Sex: Male

DRUGS (1)
  1. ISOTRETINOIN [Suspect]
     Indication: NEUROBLASTOMA
     Dosage: 80 MG,  BID

REACTIONS (3)
  - DISEASE PROGRESSION [None]
  - NEUROBLASTOMA [None]
  - OFF LABEL USE [None]
